FAERS Safety Report 17084044 (Version 1)
Quarter: 2019Q4

REPORT INFORMATION
  Report Type: Spontaneous
  Country: AU (occurrence: AU)
  Receive Date: 20191127
  Receipt Date: 20191127
  Transmission Date: 20200122
  Serious: Yes (Life-Threatening)
  Sender: FDA-Public Use
  Company Number: AU-ELI_LILLY_AND_COMPANY-AU201911010991

PATIENT
  Age: 67 Year
  Sex: Female

DRUGS (1)
  1. ZYPREXA RELPREVV [Suspect]
     Active Substance: OLANZAPINE PAMOATE
     Indication: BIPOLAR DISORDER
     Dosage: UNK, UNKNOWN
     Route: 030
     Dates: start: 20181217

REACTIONS (12)
  - Respiratory rate increased [Unknown]
  - Toxicity to various agents [Recovering/Resolving]
  - Dizziness [Recovering/Resolving]
  - Hypotension [Recovering/Resolving]
  - Product administered at inappropriate site [Unknown]
  - Hypertension [Recovering/Resolving]
  - Somnolence [Unknown]
  - Sedation [Recovering/Resolving]
  - Hypoxia [Recovering/Resolving]
  - Tachycardia [Recovering/Resolving]
  - Snoring [Unknown]
  - Emotional distress [Recovering/Resolving]

NARRATIVE: CASE EVENT DATE: 20190225
